FAERS Safety Report 6171153-2 (Version None)
Quarter: 2009Q2

REPORT INFORMATION
  Report Type: 
  Country: None (occurrence: None)
  Receive Date: 20090429
  Receipt Date: 20090428
  Transmission Date: 20091009
  Serious: Yes (Other)
  Sender: FDA-Public Use
  Company Number: BR-B.I. PHARMACEUTICALS,INC./RIDGEFIELD-2009-BR-00385BR

PATIENT
  Age: 77 Year
  Sex: Female

DRUGS (3)
  1. ATENSINA [Suspect]
     Indication: HYPERTENSION
     Dosage: .4MG
     Route: 048
  2. MICARDIS [Suspect]
     Indication: HYPERTENSION
     Dosage: 80MG
     Route: 048
  3. SELOZOK [Concomitant]
     Dosage: 200MG

REACTIONS (1)
  - BLOOD PRESSURE INCREASED [None]
